FAERS Safety Report 7073297-X (Version None)
Quarter: 2010Q4

REPORT INFORMATION
  Report Type: 
  Country: None (occurrence: None)
  Receive Date: 20101029
  Receipt Date: 20100525
  Transmission Date: 20110411
  Serious: No
  Sender: FDA-Public Use
  Company Number: A0861220A

PATIENT
  Age: 69 Year
  Sex: Female

DRUGS (4)
  1. ADVAIR DISKUS 100/50 [Suspect]
     Indication: ASTHMA
     Dosage: 250MCG TWICE PER DAY
     Route: 055
  2. PREVACID [Concomitant]
  3. PRAVASTATIN [Concomitant]
  4. VITAMINS [Concomitant]

REACTIONS (1)
  - DYSPNOEA [None]
